FAERS Safety Report 25066431 (Version 1)
Quarter: 2025Q1

REPORT INFORMATION
  Report Type: Report from Study
  Country: CA (occurrence: CA)
  Receive Date: 20250312
  Receipt Date: 20250312
  Transmission Date: 20250409
  Serious: Yes (Other)
  Sender: SAMSUNG BIOEPIS
  Company Number: CA-SAMSUNG BIOEPIS-SB-2025-08308

PATIENT
  Age: 46 Year
  Sex: Female

DRUGS (1)
  1. ETANERCEPT [Suspect]
     Active Substance: ETANERCEPT
     Indication: Rheumatoid arthritis
     Dates: start: 20240302, end: 202404

REACTIONS (5)
  - Chest pain [Unknown]
  - Nervous system disorder [Unknown]
  - Migraine [Unknown]
  - Hypoaesthesia [Unknown]
  - Loss of consciousness [Unknown]
